FAERS Safety Report 9780547 (Version 2)
Quarter: 2014Q1

REPORT INFORMATION
  Report Type: Spontaneous
  Country: MX (occurrence: MX)
  Receive Date: 20131224
  Receipt Date: 20140116
  Transmission Date: 20141002
  Serious: Yes (Hospitalization)
  Sender: FDA-Public Use
  Company Number: MX-AMGEN-MEXSP2013089698

PATIENT
  Age: 70 Year
  Sex: Male

DRUGS (8)
  1. NEUPOGEN [Suspect]
     Indication: COLONY STIMULATING FACTOR THERAPY
     Dosage: 300 UNK, CYCLE 3-5 DOSES ADMINISITERED DAY 8-12
     Route: 065
  2. NEUPOGEN [Suspect]
     Dosage: 300 MUG, CYCLE 4-6 DOSES ADMINISTERED DAY 9-14
     Route: 065
  3. CYCLOPHOSPHAMIDE [Suspect]
     Indication: NON-HODGKIN^S LYMPHOMA
     Dosage: 750 MG, DAY 1 EVERY 3 WEEKS
     Route: 065
  4. CYCLOPHOSPHAMIDE [Suspect]
     Dosage: 750 MG, DAY 1 EVERY 3 WEEKS
     Route: 065
  5. VINCRISTINE [Suspect]
     Indication: NON-HODGKIN^S LYMPHOMA
     Dosage: 2 MG, DAY 1 EVERY 3 WEEKS
     Route: 065
  6. VINCRISTINE [Suspect]
     Dosage: 2 MG, DAY 1 EVERY 3 WEEKS
     Route: 065
  7. PREDNISONE [Suspect]
     Indication: NON-HODGKIN^S LYMPHOMA
     Dosage: 100 MG, DAY 1-5 EVERY 3 WEEKS
     Route: 065
  8. PREDNISONE [Suspect]
     Dosage: 100 MG, DAY 1-5 EVERY 3 WEEKS
     Route: 065

REACTIONS (2)
  - Febrile neutropenia [Unknown]
  - Neutropenia [Unknown]
